FAERS Safety Report 9950101 (Version 1)
Quarter: 2014Q1

REPORT INFORMATION
  Report Type: Spontaneous
  Country: US (occurrence: US)
  Receive Date: 20140304
  Receipt Date: 20140304
  Transmission Date: 20141002
  Serious: No
  Sender: FDA-Public Use
  Company Number: US-ABBVIE-13P-163-1066699-00

PATIENT
  Age: 51 Year
  Sex: Female
  Weight: 65.83 kg

DRUGS (3)
  1. HUMIRA [Suspect]
     Indication: RHEUMATOID ARTHRITIS
     Dates: start: 201209, end: 201210
  2. HUMIRA [Suspect]
  3. URSODIOL [Concomitant]
     Indication: LIVER DISORDER

REACTIONS (1)
  - Bronchitis [Recovered/Resolved]
